FAERS Safety Report 4809963-3 (Version None)
Quarter: 2005Q4

REPORT INFORMATION
  Report Type: 
  Country: None (occurrence: None)
  Receive Date: 20051026
  Receipt Date: 20051017
  Transmission Date: 20060501
  Serious: Yes (Hospitalization)
  Sender: FDA-Public Use
  Company Number: 200518302US

PATIENT
  Sex: Male
  Weight: 140 kg

DRUGS (8)
  1. CARAC [Suspect]
     Dosage: DOSE: APPLIED TO LESIONS QHS 2-3 TIMES PER WEEK
     Dates: start: 20050816
  2. GLIPIZIDE [Concomitant]
     Dosage: DOSE: NOT PROVIDED
  3. ZOCOR [Concomitant]
     Dosage: DOSE: NOT PROVIDED
  4. ACTOS [Concomitant]
     Dosage: DOSE: NOT PROVIDED
  5. COZAAR [Concomitant]
     Dosage: DOSE: NOT PROVIDED
  6. HYDROCHLOROTHIAZIDE [Concomitant]
     Dosage: DOSE: NOT PROVIDED
  7. ATENOLOL [Concomitant]
     Dosage: DOSE: NOT PROVIDED
  8. VITAMIN B-12 [Concomitant]
     Dosage: DOSE: NOT PROVIDED

REACTIONS (5)
  - ABDOMINAL PAIN [None]
  - ANAEMIA [None]
  - DIARRHOEA [None]
  - DRUG TOXICITY [None]
  - RECTAL HAEMORRHAGE [None]
